FAERS Safety Report 5470516-8 (Version None)
Quarter: 2007Q3

REPORT INFORMATION
  Report Type: 
  Country: None (occurrence: None)
  Receive Date: 20070927
  Receipt Date: 20070927
  Transmission Date: 20080115
  Serious: No
  Sender: FDA-Public Use
  Company Number: None

PATIENT
  Sex: Female
  Weight: 63.5036 kg

DRUGS (4)
  1. CYTOXAN [Suspect]
     Indication: BREAST CANCER
     Dosage: EVERY 2-3 WEEKS IV DRIP
     Route: 041
     Dates: start: 20070125, end: 20070323
  2. HERCEPTIN [Suspect]
     Dosage: EVERY WEEK X'12 WEE IV DRIP
     Route: 041
     Dates: start: 20070423, end: 20070719
  3. ADRIAMYCIN PFS [Suspect]
  4. TAXOL [Suspect]

REACTIONS (3)
  - DEAFNESS [None]
  - HYPERACUSIS [None]
  - TINNITUS [None]
